FAERS Safety Report 4516990-2 (Version None)
Quarter: 2004Q4

REPORT INFORMATION
  Report Type: 
  Country: None (occurrence: None)
  Receive Date: 20041130
  Receipt Date: 20041117
  Transmission Date: 20050328
  Serious: Yes (Hospitalization)
  Sender: FDA-Public Use
  Company Number: A-CH2004-08126

PATIENT
  Age: 56 Year
  Sex: Male
  Weight: 68 kg

DRUGS (8)
  1. TRACLEER [Suspect]
     Indication: PULMONARY HYPERTENSION
     Dosage: 62.5 MG, BID, ORAL
     Route: 048
     Dates: start: 20040828, end: 20041029
  2. PHENPROCOUMON (PHENPROCOUMON) [Concomitant]
  3. TREPROSTINIL [Concomitant]
  4. ALLOPURINOL [Concomitant]
  5. FUROSEMIDE [Concomitant]
  6. ACETAZOLAMIDE [Concomitant]
  7. SPIRONOLACTONE [Concomitant]
  8. GABAPENTIN [Concomitant]

REACTIONS (2)
  - ASCITES [None]
  - CARDIAC FAILURE [None]
